FAERS Safety Report 13887759 (Version 2)
Quarter: 2018Q1

REPORT INFORMATION
  Report Type: Report from Study
  Country: US (occurrence: US)
  Receive Date: 20170821
  Receipt Date: 20180316
  Transmission Date: 20180508
  Serious: Yes (Death, Hospitalization)
  Sender: FDA-Public Use
  Company Number: US-ACTELION-A-NJ2017-158190

PATIENT
  Age: 83 Year
  Sex: Female

DRUGS (3)
  1. OPSUMIT [Suspect]
     Active Substance: MACITENTAN
     Indication: PULMONARY ARTERIAL HYPERTENSION
     Dosage: 10 MG, QD
     Route: 048
     Dates: start: 20150116
  2. BUMEX [Concomitant]
     Active Substance: BUMETANIDE
  3. LASIX [Concomitant]
     Active Substance: FUROSEMIDE

REACTIONS (5)
  - Death [Fatal]
  - Gout [Unknown]
  - Colitis [Unknown]
  - Renal disorder [Unknown]
  - Diarrhoea [Unknown]

NARRATIVE: CASE EVENT DATE: 20180223
